FAERS Safety Report 16527387 (Version 1)
Quarter: 2019Q3

REPORT INFORMATION
  Report Type: Spontaneous
  Country: FR (occurrence: FR)
  Receive Date: 20190704
  Receipt Date: 20190704
  Transmission Date: 20191004
  Serious: Yes (Hospitalization, Other)
  Sender: FDA-Public Use
  Company Number: FR-BAUSCH-BL-2019-018796

PATIENT
  Age: 29 Year
  Sex: Female

DRUGS (5)
  1. PREDNISOLONE. [Suspect]
     Active Substance: PREDNISOLONE
     Indication: GLOMERULONEPHRITIS
     Route: 065
  2. METHYLPREDNISOLONE. [Suspect]
     Active Substance: METHYLPREDNISOLONE
     Indication: PRODUCT USED FOR UNKNOWN INDICATION
     Route: 065
     Dates: start: 2017
  3. RAMIPRIL. [Concomitant]
     Active Substance: RAMIPRIL
     Indication: PRODUCT USED FOR UNKNOWN INDICATION
     Route: 065
     Dates: start: 2017
  4. HYDROXYCHLOROQUINE [Suspect]
     Active Substance: HYDROXYCHLOROQUINE
     Indication: SYSTEMIC LUPUS ERYTHEMATOSUS
     Route: 065
  5. AZATHIOPRINE. [Suspect]
     Active Substance: AZATHIOPRINE
     Indication: GLOMERULONEPHRITIS
     Route: 065
     Dates: start: 2016

REACTIONS (4)
  - Nephrotic syndrome [Recovered/Resolved with Sequelae]
  - Heart transplant [Recovered/Resolved with Sequelae]
  - Acute coronary syndrome [Recovered/Resolved with Sequelae]
  - Renal transplant [Recovered/Resolved with Sequelae]

NARRATIVE: CASE EVENT DATE: 2017
